FAERS Safety Report 16306614 (Version 3)
Quarter: 2019Q3

REPORT INFORMATION
  Report Type: Report from Study
  Country: TW (occurrence: TW)
  Receive Date: 20190513
  Receipt Date: 20190927
  Transmission Date: 20191004
  Serious: Yes (Other)
  Sender: FDA-Public Use
  Company Number: PHHY2017TW010780

PATIENT
  Age: 65 Year
  Sex: Male
  Weight: 61 kg

DRUGS (46)
  1. GABAPENTIN. [Concomitant]
     Active Substance: GABAPENTIN
     Indication: NEURALGIA
     Dosage: 300 MG, TID
     Route: 048
     Dates: start: 20160215, end: 20160831
  2. GABAPENTIN. [Concomitant]
     Active Substance: GABAPENTIN
     Dosage: 300 MG, UNK
     Route: 048
     Dates: start: 20170302, end: 20171025
  3. SENNOSIDES A+B [Concomitant]
     Active Substance: SENNOSIDES A AND B
     Dosage: 24 MG, UNK
     Route: 048
     Dates: start: 20170302, end: 20170403
  4. ALINAMIN F [Concomitant]
     Active Substance: FURSULTIAMINE HYDROCHLORIDE
     Indication: NEURALGIA
     Dosage: 1 DF, UNK
     Route: 048
     Dates: start: 20181122
  5. ALLOPURINOL. [Concomitant]
     Active Substance: ALLOPURINOL
     Indication: GOUT
     Dosage: 100 MG, UNK
     Route: 048
     Dates: start: 20160309, end: 20160315
  6. MOMETASONE FUROATE. [Concomitant]
     Active Substance: MOMETASONE FUROATE
     Dosage: 1 MG/G, UNK
     Route: 061
     Dates: start: 20170203, end: 20181025
  7. PREGABALIN. [Concomitant]
     Active Substance: PREGABALIN
     Indication: NEURALGIA
     Dosage: 75 MG, UNK
     Route: 048
     Dates: start: 20180607
  8. MAGNESIUM OXIDE. [Concomitant]
     Active Substance: MAGNESIUM OXIDE
     Indication: PROPHYLAXIS
     Dosage: 250 MG, TID
     Route: 065
     Dates: start: 20160307, end: 20160705
  9. ACECLOFENAC [Concomitant]
     Active Substance: ACECLOFENAC
     Indication: NEURALGIA
     Dosage: 100 MG, UNK
     Route: 048
     Dates: start: 20181122, end: 20181219
  10. AMITRIPTYLINE [Concomitant]
     Active Substance: AMITRIPTYLINE
     Indication: NEURALGIA
     Dosage: 25 MG, UNK
     Route: 048
     Dates: start: 20160215, end: 20160222
  11. MOMETASONE FUROATE. [Concomitant]
     Active Substance: MOMETASONE FUROATE
     Dosage: 1 MG/G, UNK
     Route: 061
     Dates: start: 20161109, end: 20161123
  12. GABAPENTIN. [Concomitant]
     Active Substance: GABAPENTIN
     Indication: NEURITIS
     Dosage: 300 MG, UNK
     Route: 048
     Dates: start: 20161201, end: 20170127
  13. ACETAMINOPHEN. [Concomitant]
     Active Substance: ACETAMINOPHEN
     Indication: NEURALGIA
     Dosage: 325 MG, UNK
     Route: 048
     Dates: start: 20160215, end: 20160221
  14. IWELL [Concomitant]
     Indication: PROPHYLAXIS
     Dosage: 1 OT, UNK
     Route: 065
     Dates: start: 20161201, end: 20170127
  15. IWELL [Concomitant]
     Dosage: 1 OT, UNK
     Route: 048
     Dates: start: 20170302, end: 20170905
  16. ACECLOFENAC [Concomitant]
     Active Substance: ACECLOFENAC
     Indication: NEURITIS
  17. ACETAZOLAMIDE. [Concomitant]
     Active Substance: ACETAZOLAMIDE
     Indication: PROPHYLAXIS
     Dosage: 250 MG, UNK
     Route: 048
     Dates: start: 20180705, end: 20180719
  18. PENTOXIFYLLINE. [Concomitant]
     Active Substance: PENTOXIFYLLINE
     Indication: CEREBROVASCULAR DISORDER
     Dosage: 400 MG, UNK
     Route: 048
     Dates: start: 20171221, end: 20181122
  19. MELITRACEN [Concomitant]
     Active Substance: MELITRACEN
     Indication: PERSISTENT DEPRESSIVE DISORDER
     Dosage: 1 DF, QD
     Route: 065
     Dates: start: 20160331, end: 20160927
  20. MAGNESIUM OXIDE. [Concomitant]
     Active Substance: MAGNESIUM OXIDE
     Indication: CONSTIPATION
     Dosage: 500 MG, UNK
     Route: 048
     Dates: start: 20160222, end: 20160306
  21. SENNOSIDES A+B [Concomitant]
     Active Substance: SENNOSIDES A AND B
     Dosage: 24 MG, UNK
     Route: 048
     Dates: start: 20170418
  22. ETOFENAMATE [Concomitant]
     Active Substance: ETOFENAMATE
     Indication: NEURALGIA
     Dosage: UNK
     Route: 061
     Dates: start: 20181220
  23. PREGABALIN. [Concomitant]
     Active Substance: PREGABALIN
     Indication: NEURITIS
  24. TASIGNA [Suspect]
     Active Substance: NILOTINIB
     Indication: CHRONIC MYELOID LEUKAEMIA
     Dosage: 600 MG, UNK
     Route: 048
     Dates: start: 20160309
  25. MECOBALAMIN [Concomitant]
     Active Substance: METHYLCOBALAMIN
     Dosage: 0.5 MG, UNK
     Route: 048
     Dates: start: 20170302, end: 20171025
  26. MECOBALAMIN [Concomitant]
     Active Substance: METHYLCOBALAMIN
     Dosage: 0.5 MG, UNK
     Route: 048
     Dates: start: 20171026, end: 20180606
  27. TRAMADOL. [Concomitant]
     Active Substance: TRAMADOL
     Indication: NEURALGIA
     Dosage: 37.5 MG, UNK
     Route: 048
     Dates: start: 20160215, end: 20160221
  28. AMITRIPTYLINE [Concomitant]
     Active Substance: AMITRIPTYLINE
     Indication: NEURITIS
  29. ETOFENAMATE [Concomitant]
     Active Substance: ETOFENAMATE
     Indication: NEURITIS
  30. BISOPROLOL [Concomitant]
     Active Substance: BISOPROLOL
     Indication: ESSENTIAL HYPERTENSION
     Dosage: 5 MG, QD, MORE THAN 3 MONTHS BEFORE VISIT 1
     Route: 065
  31. GABAPENTIN. [Concomitant]
     Active Substance: GABAPENTIN
     Dosage: 300 MG, UNK
     Route: 048
     Dates: start: 20171026, end: 20180606
  32. MECOBALAMIN [Concomitant]
     Active Substance: METHYLCOBALAMIN
     Indication: NEURITIS
     Dosage: 0.5 MG, UNK
     Route: 048
     Dates: start: 20161201, end: 20170127
  33. MAGNESIUM OXIDE. [Concomitant]
     Active Substance: MAGNESIUM OXIDE
     Dosage: 500 MG, UNK
     Route: 048
     Dates: start: 20160706, end: 20160831
  34. BACLOFEN. [Concomitant]
     Active Substance: BACLOFEN
     Indication: NEURALGIA
     Dosage: 5 MG, UNK
     Route: 048
     Dates: start: 20160222, end: 20160401
  35. BACLOFEN. [Concomitant]
     Active Substance: BACLOFEN
     Indication: NEURITIS
  36. FLUPENTIXOL [Concomitant]
     Active Substance: FLUPENTIXOL
     Indication: PERSISTENT DEPRESSIVE DISORDER
     Dosage: 1 DF, QD
     Route: 065
     Dates: start: 20160331, end: 20160927
  37. MECOBALAMIN [Concomitant]
     Active Substance: METHYLCOBALAMIN
     Indication: NEURALGIA
     Dosage: 0.5 MG, BID
     Route: 048
     Dates: start: 20160215, end: 20160831
  38. MAGNESIUM OXIDE. [Concomitant]
     Active Substance: MAGNESIUM OXIDE
     Dosage: 250 MG, UNK
     Route: 048
     Dates: start: 20170906, end: 20171025
  39. ACETAMINOPHEN. [Concomitant]
     Active Substance: ACETAMINOPHEN
     Indication: NEURITIS
     Dosage: 325 MG, UNK
     Route: 065
     Dates: start: 20160222, end: 20160508
  40. SENNOSIDES A+B [Concomitant]
     Active Substance: SENNOSIDES A AND B
     Indication: CONSTIPATION
     Dosage: 12 MG, UNK
     Route: 048
     Dates: start: 20170126, end: 20170302
  41. SENNOSIDES A+B [Concomitant]
     Active Substance: SENNOSIDES A AND B
     Dosage: 24 MG, UNK
     Route: 048
     Dates: start: 20161201, end: 20170125
  42. ALINAMIN F [Concomitant]
     Active Substance: FURSULTIAMINE HYDROCHLORIDE
     Indication: NEURITIS
  43. MECOBALAMIN [Concomitant]
     Active Substance: METHYLCOBALAMIN
     Dosage: 0.5 MG, UNK
     Route: 048
     Dates: start: 20180607, end: 20181122
  44. TRAMADOL. [Concomitant]
     Active Substance: TRAMADOL
     Indication: NEURITIS
     Dosage: 37.5 MG, TID
     Route: 048
     Dates: start: 20160222, end: 20160508
  45. SENNOSIDES A+B [Concomitant]
     Active Substance: SENNOSIDES A AND B
     Dosage: 24 MG, UNK
     Route: 048
     Dates: start: 20170302, end: 20170403
  46. MOMETASONE FUROATE. [Concomitant]
     Active Substance: MOMETASONE FUROATE
     Indication: PRURITUS
     Dosage: UNK
     Route: 061
     Dates: start: 20181221

REACTIONS (9)
  - White blood cell count decreased [Recovered/Resolved]
  - Platelet count decreased [Not Recovered/Not Resolved]
  - Anaemia [Recovered/Resolved]
  - White blood cell count decreased [Recovered/Resolved]
  - Anaemia [Recovered/Resolved]
  - Platelet count decreased [Recovered/Resolved]
  - Neutrophil count decreased [Recovered/Resolved]
  - Myelodysplastic syndrome [Not Recovered/Not Resolved]
  - Anaemia [Recovered/Resolved]

NARRATIVE: CASE EVENT DATE: 20160329
